FAERS Safety Report 6920285-7 (Version None)
Quarter: 2010Q3

REPORT INFORMATION
  Report Type: 
  Country: None (occurrence: None)
  Receive Date: 20100811
  Receipt Date: 20100805
  Transmission Date: 20110219
  Serious: Yes (Other)
  Sender: FDA-Public Use
  Company Number: US-AMGEN-QUU429314

PATIENT
  Sex: Male

DRUGS (2)
  1. NPLATE [Suspect]
     Indication: IDIOPATHIC THROMBOCYTOPENIC PURPURA
     Dates: start: 20090522, end: 20100430
  2. IMMU-G [Concomitant]
     Route: 042

REACTIONS (2)
  - REFUSAL OF TREATMENT BY PATIENT [None]
  - THROMBOCYTOPENIA [None]
